FAERS Safety Report 10046605 (Version 1)
Quarter: 2014Q1

REPORT INFORMATION
  Report Type: Spontaneous
  Country: US (occurrence: US)
  Receive Date: 20140331
  Receipt Date: 20140331
  Transmission Date: 20141002
  Serious: No
  Sender: FDA-Public Use
  Company Number: US-BIOGENIDEC-2014BI028726

PATIENT
  Age: 57 Year
  Sex: Female

DRUGS (7)
  1. TECFIDERA [Suspect]
     Indication: MULTIPLE SCLEROSIS
     Route: 048
     Dates: start: 20140225
  2. DIAZEPAM [Concomitant]
  3. GABAPENTIN [Concomitant]
  4. HYDROXYZINE HCI [Concomitant]
  5. POTASSIUM CHLORIDE [Concomitant]
  6. PRAVASTATIN SODIUM [Concomitant]
  7. VERAPAMIL HCI CR [Concomitant]

REACTIONS (1)
  - Nasopharyngitis [Unknown]
